FAERS Safety Report 16766742 (Version 1)
Quarter: 2019Q3

REPORT INFORMATION
  Report Type: Report from Study
  Country: JP (occurrence: JP)
  Receive Date: 20190903
  Receipt Date: 20190903
  Transmission Date: 20191005
  Serious: Yes (Life-Threatening, Hospitalization, Other)
  Sender: FDA-Public Use
  Company Number: JP-RECRO GAINESVILLE LLC-REPH-2019-000166

PATIENT
  Age: 73 Year
  Sex: Female

DRUGS (1)
  1. VERAPAMIL HYDROCHLORIDE SUSTAINED RELEASE [Suspect]
     Active Substance: VERAPAMIL HYDROCHLORIDE
     Dosage: 90, 40-MG TABLETS, ONE TIME DOSE
     Route: 048

REACTIONS (9)
  - Dysarthria [Recovered/Resolved]
  - Bradycardia [Recovered/Resolved]
  - Hypokalaemia [Recovered/Resolved]
  - Atrioventricular block first degree [Recovered/Resolved]
  - Hypotension [Recovered/Resolved]
  - Atrioventricular dissociation [Recovered/Resolved]
  - Intentional overdose [Recovered/Resolved]
  - Loss of consciousness [Recovered/Resolved]
  - Hyperglycaemia [Recovered/Resolved]
